FAERS Safety Report 16250189 (Version 2)
Quarter: 2019Q2

REPORT INFORMATION
  Report Type: Spontaneous
  Country: US (occurrence: US)
  Receive Date: 20190429
  Receipt Date: 20190604
  Transmission Date: 20190711
  Serious: No
  Sender: FDA-Public Use
  Company Number: US-GLAXOSMITHKLINE-US2019075048

PATIENT
  Sex: Female

DRUGS (2)
  1. LEVOXYL [Concomitant]
     Active Substance: LEVOTHYROXINE SODIUM
     Dosage: UNK
  2. ADVAIR DISKUS [Suspect]
     Active Substance: FLUTICASONE PROPIONATE\SALMETEROL XINAFOATE
     Indication: ASTHMA
     Dosage: 1 PUFF(S), BID
     Route: 055
     Dates: start: 20190401

REACTIONS (3)
  - Dysgeusia [Not Recovered/Not Resolved]
  - Dysphonia [Unknown]
  - Middle ear effusion [Unknown]

NARRATIVE: CASE EVENT DATE: 201904
